FAERS Safety Report 12730472 (Version 2)
Quarter: 2016Q3

REPORT INFORMATION
  Report Type: Spontaneous
  Country: US (occurrence: US)
  Receive Date: 20160909
  Receipt Date: 20160919
  Transmission Date: 20161109
  Serious: No
  Sender: FDA-Public Use
  Company Number: US-ACTELION-A-US2016-141781

PATIENT
  Age: 67 Year
  Sex: Female

DRUGS (1)
  1. VALCHLOR [Suspect]
     Active Substance: MECHLORETHAMINE
     Indication: MYCOSIS FUNGOIDES
     Dosage: UNK, QD, APPLY THIN FILM
     Route: 061
     Dates: start: 20140709, end: 2016

REACTIONS (5)
  - Application site erythema [Unknown]
  - Hypersensitivity [Unknown]
  - Application site pruritus [Unknown]
  - Application site burn [Unknown]
  - Application site vesicles [Unknown]
